FAERS Safety Report 9853156 (Version 2)
Quarter: 2014Q1

REPORT INFORMATION
  Report Type: Spontaneous
  Country: DE (occurrence: DE)
  Receive Date: 20140129
  Receipt Date: 20140212
  Transmission Date: 20141002
  Serious: Yes (Hospitalization, Disabling)
  Sender: FDA-Public Use
  Company Number: DE-B.I. PHARMACEUTICALS,INC./RIDGEFIELD-2014-BI-02974DE

PATIENT
  Age: 86 Year
  Sex: Female
  Weight: 80 kg

DRUGS (13)
  1. PRADAXA [Suspect]
     Indication: ATRIAL FIBRILLATION
     Dosage: 300 MG
     Route: 048
     Dates: end: 20131230
  2. CELEBREX [Suspect]
     Indication: OSTEOARTHRITIS
     Dosage: 200 MG
     Route: 048
  3. ATACAND [Concomitant]
     Dosage: 8 MG
     Route: 048
  4. SYMBICORT TH 160/4,5 [Concomitant]
     Dosage: 4 ANZ
     Route: 055
  5. CALCIUM 500 MG BTA [Concomitant]
     Indication: OSTEOPOROSIS
     Dosage: 500 MG
     Route: 048
  6. MACROGOL BTL. [Concomitant]
     Dosage: 2 ANZ
     Route: 048
  7. PANTOZOL [Concomitant]
     Dosage: 80 MG
     Route: 048
  8. MEDYN FORTE [Concomitant]
     Dosage: 2 ANZ
     Route: 048
  9. L-THYROXIN [Concomitant]
     Dosage: 25 MCG
     Route: 048
  10. HYDROCORTISON 10 MG JENAPHARM [Concomitant]
     Indication: ADENOMA BENIGN
     Dosage: 5 MG
     Route: 048
  11. VIGANTOLETTEN [Concomitant]
     Indication: OSTEOPOROSIS
     Dosage: 1000 U
     Route: 048
  12. BISOPROLOL [Concomitant]
     Dosage: 5 MG
     Route: 048
  13. SPASMEX 15 [Concomitant]
     Route: 048

REACTIONS (3)
  - Gastric perforation [Recovered/Resolved]
  - Haemorrhage [Recovered/Resolved]
  - Melaena [Recovered/Resolved]
